FAERS Safety Report 14073765 (Version 2)
Quarter: 2019Q4

REPORT INFORMATION
  Report Type: Spontaneous
  Country: US (occurrence: US)
  Receive Date: 20171010
  Receipt Date: 20191024
  Transmission Date: 20200122
  Serious: No
  Sender: FDA-Public Use
  Company Number: US-JNJFOC-20170903097

PATIENT
  Age: 9 Month
  Sex: Male

DRUGS (1)
  1. PARACETAMOL [Suspect]
     Active Substance: ACETAMINOPHEN
     Indication: PYREXIA
     Dosage: ONE TIME
     Route: 065

REACTIONS (3)
  - Drug ineffective [Unknown]
  - Crying [Not Recovered/Not Resolved]
  - Product lot number issue [Unknown]
